FAERS Safety Report 5269038-9 (Version None)
Quarter: 2007Q1

REPORT INFORMATION
  Report Type: 
  Country: None (occurrence: None)
  Receive Date: 20070319
  Receipt Date: 20070305
  Transmission Date: 20070707
  Serious: Yes (Hospitalization)
  Sender: FDA-Public Use
  Company Number: GB-ELI_LILLY_AND_COMPANY-GB200703001131

PATIENT
  Age: 15 Year
  Sex: Female
  Weight: 38.095 kg

DRUGS (2)
  1. STRATTERA [Suspect]
     Indication: ATTENTION DEFICIT/HYPERACTIVITY DISORDER
     Dosage: 50 MG, DAILY (1/D)
     Route: 048
     Dates: start: 20060901, end: 20070303
  2. RITALIN [Concomitant]
     Indication: ATTENTION DEFICIT/HYPERACTIVITY DISORDER
     Dosage: 10 MG, 2/D
     Dates: start: 20050101

REACTIONS (3)
  - INTENTIONAL OVERDOSE [None]
  - MYDRIASIS [None]
  - TACHYCARDIA [None]
